FAERS Safety Report 12825476 (Version 1)
Quarter: 2016Q4

REPORT INFORMATION
  Report Type: Spontaneous
  Country: GB (occurrence: GB)
  Receive Date: 20161007
  Receipt Date: 20161007
  Transmission Date: 20170207
  Serious: Yes (Other)
  Sender: FDA-Public Use
  Company Number: GB-JNJFOC-20161002785

PATIENT
  Age: 68 Year
  Sex: Male

DRUGS (5)
  1. MARAVIROC [Suspect]
     Active Substance: MARAVIROC
     Indication: PRODUCT USED FOR UNKNOWN INDICATION
     Route: 065
  2. RALTEGRAVIR. [Suspect]
     Active Substance: RALTEGRAVIR
     Indication: PRODUCT USED FOR UNKNOWN INDICATION
     Dosage: 400.0 (UNITS NOT REPORTED)
     Route: 065
  3. MARAVIROC [Suspect]
     Active Substance: MARAVIROC
     Indication: PRODUCT USED FOR UNKNOWN INDICATION
     Dosage: 150.0 (UNITS NOT REPORTED)
     Route: 065
  4. NORVIR [Suspect]
     Active Substance: RITONAVIR
     Indication: PRODUCT USED FOR UNKNOWN INDICATION
     Dosage: 100.0 (UNITS NOT REPORTED)
     Route: 065
  5. PREZISTA [Suspect]
     Active Substance: DARUNAVIR ETHANOLATE
     Indication: PRODUCT USED FOR UNKNOWN INDICATION
     Dosage: 600.0 (UNITS NOT REPORTED)
     Route: 048

REACTIONS (1)
  - Lung neoplasm malignant [Unknown]
